FAERS Safety Report 8235756-3 (Version None)
Quarter: 2012Q1

REPORT INFORMATION
  Report Type: 
  Country: None (occurrence: None)
  Receive Date: 20120326
  Receipt Date: 20120320
  Transmission Date: 20120608
  Serious: Yes (Hospitalization)
  Sender: FDA-Public Use
  Company Number: PHHO2012DE004672

PATIENT
  Sex: Male
  Weight: 86 kg

DRUGS (4)
  1. BLINDED PLACEBO [Suspect]
     Indication: TUBEROUS SCLEROSIS
     Dosage: CODE NOT BROKEN
     Route: 048
     Dates: start: 20090909
  2. DOXYLAMINE SUCCINATE [Concomitant]
     Indication: SLEEP DISORDER
     Dosage: 25 MG, QD
     Dates: start: 20120207, end: 20120318
  3. AFINITOR [Suspect]
     Indication: TUBEROUS SCLEROSIS
     Dosage: CODE NOT BROKEN
     Route: 048
     Dates: start: 20090909
  4. BLINDED NO TREATMENT RECEIVED [Suspect]
     Indication: TUBEROUS SCLEROSIS
     Dosage: CODE NOT BROKEN
     Route: 048
     Dates: start: 20090909

REACTIONS (2)
  - BLOOD ALCOHOL INCREASED [None]
  - MENTAL DISABILITY [None]
